FAERS Safety Report 9093430 (Version 1)
Quarter: 2013Q1

REPORT INFORMATION
  Report Type: Report from Study
  Country: US (occurrence: US)
  Receive Date: 20130131
  Receipt Date: 20130131
  Transmission Date: 20140127
  Serious: No
  Sender: FDA-Public Use
  Company Number: US-ABBOTT-12P-163-0937385-00

PATIENT
  Sex: Female

DRUGS (5)
  1. HUMIRA [Suspect]
     Indication: RHEUMATOID ARTHRITIS
     Route: 058
     Dates: start: 201203
  2. PLAQUENIL [Concomitant]
     Indication: RHEUMATOID ARTHRITIS
  3. FORTEO [Concomitant]
     Indication: OSTEOPENIA
  4. PREDNISONE [Concomitant]
     Indication: AUTOIMMUNE HEPATITIS
  5. LEVOXYL [Concomitant]
     Indication: HYPOTHYROIDISM

REACTIONS (7)
  - Joint effusion [Unknown]
  - Aspiration joint [Unknown]
  - Joint effusion [Recovering/Resolving]
  - Joint effusion [Recovering/Resolving]
  - Injection site pain [Recovered/Resolved]
  - Injection site haemorrhage [Recovered/Resolved]
  - Joint swelling [Recovered/Resolved]
